FAERS Safety Report 7721584-1 (Version None)
Quarter: 2011Q3

REPORT INFORMATION
  Report Type: 
  Country: None (occurrence: None)
  Receive Date: 20110831
  Receipt Date: 20110825
  Transmission Date: 20111222
  Serious: Yes (Hospitalization)
  Sender: FDA-Public Use
  Company Number: AT-TEVA-298350ISR

PATIENT
  Age: 62 Year
  Sex: Female

DRUGS (1)
  1. TEMOZOLOMIDE [Suspect]
     Indication: CHEMOTHERAPY

REACTIONS (5)
  - CARDIAC ENZYMES INCREASED [None]
  - COLD SWEAT [None]
  - RESPIRATORY DISTRESS [None]
  - DIZZINESS [None]
  - NAUSEA [None]
